FAERS Safety Report 8431884-8 (Version None)
Quarter: 2012Q2

REPORT INFORMATION
  Report Type: 
  Country: None (occurrence: None)
  Receive Date: 20120613
  Receipt Date: 20120607
  Transmission Date: 20120825
  Serious: Yes (Death, Other)
  Sender: FDA-Public Use
  Company Number: JP-PFIZER INC-2012113607

PATIENT
  Age: 58 Year
  Sex: Male
  Weight: 63 kg

DRUGS (9)
  1. METHOTREXATE SODIUM [Suspect]
     Indication: DIFFUSE LARGE B-CELL LYMPHOMA
     Dosage: 15 MG, WEEKLY
     Route: 037
     Dates: start: 20090116, end: 20090123
  2. NEUTROGIN [Concomitant]
     Dosage: 250 UG, 1X/DAY
     Route: 042
     Dates: start: 20090128, end: 20090201
  3. RITUXIMAB [Suspect]
     Indication: DIFFUSE LARGE B-CELL LYMPHOMA
     Dosage: 600 MG, 1X/DAY
     Route: 042
     Dates: start: 20090116, end: 20090116
  4. PREDNISOLONE [Suspect]
     Indication: DIFFUSE LARGE B-CELL LYMPHOMA
     Dosage: 20 MG, WEEKLY
     Route: 037
     Dates: start: 20090116, end: 20090123
  5. ADRIAMYCIN PFS [Suspect]
     Indication: DIFFUSE LARGE B-CELL LYMPHOMA
     Dosage: 80 MG, 1X/DAY
     Route: 042
     Dates: start: 20090116, end: 20090116
  6. CYCLOPHOSPHAMIDE [Suspect]
     Indication: DIFFUSE LARGE B-CELL LYMPHOMA
     Dosage: 1250 MG, UNK
     Route: 042
     Dates: start: 20090116, end: 20090116
  7. VINCRISTINE SULFATE [Suspect]
     Indication: DIFFUSE LARGE B-CELL LYMPHOMA
     Dosage: 2 MG, 1X/DAY
     Route: 042
     Dates: start: 20090116, end: 20090116
  8. PREDNISOLONE [Suspect]
     Indication: DIFFUSE LARGE B-CELL LYMPHOMA
     Dosage: 100 MG, 1X/DAY
     Route: 048
     Dates: start: 20090116, end: 20090120
  9. NEUTROGIN [Concomitant]
     Indication: BONE MARROW FAILURE
     Dosage: 200 UG, 1X/DAY
     Route: 037
     Dates: start: 20090123, end: 20090127

REACTIONS (2)
  - BONE MARROW FAILURE [None]
  - PNEUMONIA [None]
